FAERS Safety Report 5820224-6 (Version None)
Quarter: 2008Q3

REPORT INFORMATION
  Report Type: 
  Country: None (occurrence: None)
  Receive Date: 20080724
  Receipt Date: 20080723
  Transmission Date: 20090109
  Serious: Yes (Death, Hospitalization)
  Sender: FDA-Public Use
  Company Number: PHEH2000US02311

PATIENT
  Sex: Female

DRUGS (17)
  1. PLACEBO PLACEBO [Suspect]
     Dosage: UNK
     Route: 048
     Dates: start: 19990621
  2. NEORAL [Suspect]
     Indication: LIVER TRANSPLANT
     Route: 048
     Dates: start: 19990601, end: 20000623
  3. BACTRIM [Concomitant]
  4. ISORDIL [Concomitant]
  5. LOPRESSOR [Concomitant]
  6. PEPCID [Concomitant]
  7. ASPIRIN [Concomitant]
  8. DILANTIN [Concomitant]
  9. VICODIN [Concomitant]
  10. ACTIGALL [Concomitant]
  11. MULTI-VITAMINS [Concomitant]
  12. PRILOSEC [Concomitant]
  13. CALCIUM CARBONATE [Concomitant]
  14. LIPITOR [Concomitant]
  15. METOPROLOL TARTRATE [Concomitant]
  16. OXYCONTIN [Concomitant]
  17. FOSAMAX [Concomitant]

REACTIONS (9)
  - CHOLECYSTITIS [None]
  - DEHYDRATION [None]
  - ELECTROLYTE IMBALANCE [None]
  - HEPATIC FAILURE [None]
  - HYPONATRAEMIA [None]
  - INFECTION [None]
  - PSEUDOLYMPHOMA [None]
  - RESPIRATORY FAILURE [None]
  - SEPSIS [None]
